FAERS Safety Report 7453147-X (Version None)
Quarter: 2011Q2

REPORT INFORMATION
  Report Type: 
  Country: None (occurrence: None)
  Receive Date: 20110502
  Receipt Date: 20110225
  Transmission Date: 20111010
  Serious: No
  Sender: FDA-Public Use
  Company Number: US-ASTRAZENECA-2010SE55450

PATIENT
  Age: 90 Year
  Sex: Male

DRUGS (5)
  1. PLAVIX [Concomitant]
  2. FLOMAX [Concomitant]
  3. NEXIUM [Suspect]
     Route: 048
  4. PRILOSEC OTC [Suspect]
     Route: 048
  5. XANAX [Concomitant]

REACTIONS (4)
  - MENTAL IMPAIRMENT [None]
  - GASTROOESOPHAGEAL REFLUX DISEASE [None]
  - DRUG INEFFECTIVE [None]
  - DRUG DOSE OMISSION [None]
